FAERS Safety Report 21739243 (Version 2)
Quarter: 2022Q4

REPORT INFORMATION
  Report Type: Report from Study
  Country: US (occurrence: US)
  Receive Date: 20221216
  Receipt Date: 20221223
  Transmission Date: 20230113
  Serious: No
  Sender: FDA-Public Use
  Company Number: US-ABBVIE-4235806

PATIENT
  Age: 58 Year
  Sex: Female

DRUGS (2)
  1. HUMIRA [Suspect]
     Active Substance: ADALIMUMAB
     Indication: Rheumatoid arthritis
     Dosage: CITRATE FREE?LAST ADMIN DATE WAS 2022?FORM STRENGTH: 40 MILLIGRAM
     Route: 058
     Dates: start: 20220610
  2. HUMIRA [Suspect]
     Active Substance: ADALIMUMAB
     Dosage: CITRATE FREE?FORM STRENGTH: 40 MILLIGRAM
     Route: 058
     Dates: start: 20221111, end: 20221209

REACTIONS (9)
  - Dizziness [Recovering/Resolving]
  - Poor quality sleep [Not Recovered/Not Resolved]
  - Fall [Not Recovered/Not Resolved]
  - Memory impairment [Not Recovered/Not Resolved]
  - Amnesia [Recovering/Resolving]
  - Self-injurious ideation [Unknown]
  - Decreased appetite [Not Recovered/Not Resolved]
  - Limb injury [Not Recovered/Not Resolved]
  - Impaired healing [Not Recovered/Not Resolved]

NARRATIVE: CASE EVENT DATE: 20221201
